FAERS Safety Report 16817222 (Version 1)
Quarter: 2019Q3

REPORT INFORMATION
  Report Type: Spontaneous
  Country: AT (occurrence: AT)
  Receive Date: 20190917
  Receipt Date: 20190917
  Transmission Date: 20191005
  Serious: Yes (Life-Threatening, Hospitalization)
  Sender: FDA-Public Use
  Company Number: AT-JNJFOC-20190904717

PATIENT
  Sex: Female

DRUGS (1)
  1. XEPLION [Suspect]
     Active Substance: PALIPERIDONE PALMITATE
     Indication: PRODUCT USED FOR UNKNOWN INDICATION
     Dosage: (2X 150 MG)
     Route: 030

REACTIONS (3)
  - Off label use [Unknown]
  - Suicide attempt [Unknown]
  - Intentional product misuse [Unknown]
